FAERS Safety Report 8853147 (Version 1)
Quarter: 2012Q4

REPORT INFORMATION
  Report Type: 
  Country: US (occurrence: US)
  Receive Date: 20121022
  Receipt Date: 20121022
  Transmission Date: 20130627
  Serious: Yes (Other)
  Sender: FDA-Public Use
  Company Number: US-ROCHE-1073972

PATIENT
  Sex: Male
  Weight: 81.72 kg

DRUGS (6)
  1. ACCUTANE [Suspect]
     Indication: DERMATITIS
     Route: 065
     Dates: start: 19991221, end: 200001
  2. ACCUTANE [Suspect]
     Route: 065
     Dates: start: 200207, end: 200307
  3. ACCUTANE [Suspect]
     Route: 065
     Dates: start: 20031013, end: 20031023
  4. ACCUTANE [Suspect]
     Route: 065
     Dates: start: 2007
  5. ACCUTANE [Suspect]
     Route: 065
     Dates: start: 20080117, end: 20080127
  6. ACCUTANE [Suspect]
     Route: 065
     Dates: end: 2009

REACTIONS (10)
  - Inflammatory bowel disease [Unknown]
  - Colitis ulcerative [Unknown]
  - Intestinal haemorrhage [Unknown]
  - Intestinal obstruction [Unknown]
  - Angina pectoris [Unknown]
  - Large intestine polyp [Unknown]
  - Pancreatitis [Unknown]
  - Vision blurred [Unknown]
  - Night blindness [Unknown]
  - Oedema peripheral [Unknown]
